FAERS Safety Report 8612889-0 (Version None)
Quarter: 2012Q3

REPORT INFORMATION
  Report Type: 
  Country: None (occurrence: None)
  Receive Date: 20120822
  Receipt Date: 20110902
  Transmission Date: 20120928
  Serious: No
  Sender: FDA-Public Use
  Company Number: US-ALLERGAN-1111799US

PATIENT
  Age: 77 Year
  Sex: Male

DRUGS (14)
  1. CITRUCEL [Concomitant]
  2. ASPIRIN [Concomitant]
  3. VITAMIN B COMPLEX CAP [Concomitant]
  4. SANCTURA XR [Suspect]
     Indication: INCONTINENCE
     Dosage: 60 MG, QAM
     Route: 048
     Dates: start: 20110816
  5. FOLIC ACID [Concomitant]
  6. BENTYL [Concomitant]
  7. MIRALAX [Concomitant]
  8. PERSERVISION [Concomitant]
  9. ATENOLOL [Concomitant]
  10. FLOMAX [Concomitant]
  11. BENAZEPRIL HYDROCHLORIDE [Concomitant]
  12. MULTI-VITAMIN [Concomitant]
  13. ZOCOR [Concomitant]
  14. PROTONIX [Concomitant]

REACTIONS (2)
  - NOCTURIA [None]
  - URINE OUTPUT INCREASED [None]
